FAERS Safety Report 16362568 (Version 1)
Quarter: 2019Q3

REPORT INFORMATION
  Report Type: Spontaneous
  Country: US (occurrence: US)
  Receive Date: 20190525
  Receipt Date: 20190525
  Transmission Date: 20191004
  Serious: Yes (Other)
  Sender: FDA-Public Use
  Company Number: None

PATIENT
  Age: 62 Year
  Sex: Female
  Weight: 67.59 kg

DRUGS (10)
  1. ASPIRIN. [Concomitant]
     Active Substance: ASPIRIN
  2. LOSARTAN. [Concomitant]
     Active Substance: LOSARTAN
  3. METFORMIN [Concomitant]
     Active Substance: METFORMIN HYDROCHLORIDE
  4. CRESTOR [Concomitant]
     Active Substance: ROSUVASTATIN CALCIUM
  5. LAMISIL [Concomitant]
     Active Substance: TERBINAFINE HYDROCHLORIDE
  6. ZIRTEC [Concomitant]
     Active Substance: CETIRIZINE HYDROCHLORIDE
  7. SERAVENT INHAILER, [Concomitant]
  8. TRULICITY [Suspect]
     Active Substance: DULAGLUTIDE
  9. B12 INJECTION [Concomitant]
  10. CLIMARA [Concomitant]
     Active Substance: ESTRADIOL

REACTIONS (3)
  - Vulvovaginal pruritus [None]
  - Vaginal mucosal blistering [None]
  - Urinary incontinence [None]
